FAERS Safety Report 12760027 (Version 1)
Quarter: 2016Q3

REPORT INFORMATION
  Report Type: Report from Study
  Country: GB (occurrence: GB)
  Receive Date: 20160919
  Receipt Date: 20160919
  Transmission Date: 20161109
  Serious: Yes (Other)
  Sender: FDA-Public Use
  Company Number: GB-MYLANLABS-2016M1039959

PATIENT

DRUGS (3)
  1. TREOSULFAN [Suspect]
     Active Substance: TREOSULFAN
     Indication: IMMUNOSUPPRESSANT DRUG THERAPY
     Dosage: 42 G/M2 OR 36G/M2
     Route: 065
  2. ALEMTUZUMAB [Suspect]
     Active Substance: ALEMTUZUMAB
     Indication: IMMUNOSUPPRESSANT DRUG THERAPY
     Route: 065
  3. FLUDARABINE [Suspect]
     Active Substance: FLUDARABINE PHOSPHATE
     Indication: IMMUNOSUPPRESSANT DRUG THERAPY
     Route: 065

REACTIONS (5)
  - Pigmentation disorder [Recovered/Resolved]
  - Skin exfoliation [Recovered/Resolved]
  - Rash generalised [Recovered/Resolved]
  - Skin toxicity [Recovered/Resolved]
  - Anal ulcer [Recovered/Resolved]
